FAERS Safety Report 11727898 (Version 2)
Quarter: 2015Q4

REPORT INFORMATION
  Report Type: Spontaneous
  Country: AU (occurrence: AU)
  Receive Date: 20151112
  Receipt Date: 20151207
  Transmission Date: 20160304
  Serious: Yes (Other)
  Sender: FDA-Public Use
  Company Number: AU-ELI_LILLY_AND_COMPANY-AU201511001738

PATIENT
  Sex: Male

DRUGS (3)
  1. ZYPREXA [Suspect]
     Active Substance: OLANZAPINE
     Dosage: 10 MG, BID
     Route: 065
     Dates: start: 2011
  2. ZYPREXA [Suspect]
     Active Substance: OLANZAPINE
     Indication: BIPOLAR DISORDER
     Dosage: 5 MG, EACH MORNING
     Route: 065
     Dates: start: 20151021, end: 20151028
  3. ZYPREXA [Suspect]
     Active Substance: OLANZAPINE
     Indication: SCHIZOPHRENIA
     Dosage: 10 MG, EACH EVENING
     Route: 065
     Dates: start: 20151021, end: 20151028

REACTIONS (6)
  - Paraesthesia [Not Recovered/Not Resolved]
  - Drug dose omission [Unknown]
  - Cognitive disorder [Not Recovered/Not Resolved]
  - Sinus congestion [Not Recovered/Not Resolved]
  - Dyspnoea [Not Recovered/Not Resolved]
  - Dizziness [Not Recovered/Not Resolved]

NARRATIVE: CASE EVENT DATE: 20151029
